FAERS Safety Report 15192780 (Version 2)
Quarter: 2018Q3

REPORT INFORMATION
  Report Type: Report from Study
  Country: PE (occurrence: PE)
  Receive Date: 20180725
  Receipt Date: 20180821
  Transmission Date: 20181010
  Serious: Yes (Other)
  Sender: FDA-Public Use
  Company Number: PE-ROCHE-2136025

PATIENT
  Sex: Female

DRUGS (3)
  1. PREDNISONE. [Concomitant]
     Active Substance: PREDNISONE
     Indication: RHEUMATOID ARTHRITIS
     Dosage: ONE TABLET AND A HALF EVERY DAY OF 5 MG?THE ARTHRITIS WAS ACTIVATED, SO SHE WAS TAKING PREDNISONE EV
     Route: 048
  2. ACTEMRA [Suspect]
     Active Substance: TOCILIZUMAB
     Dosage: SUSPENDED IN JUNE
     Route: 042
     Dates: start: 20180405
  3. ACTEMRA [Suspect]
     Active Substance: TOCILIZUMAB
     Indication: RHEUMATOID ARTHRITIS
     Dosage: SUSPENDED IN JUNE
     Route: 042
     Dates: start: 20161217

REACTIONS (3)
  - Abortion spontaneous [Unknown]
  - Foetal death [Not Recovered/Not Resolved]
  - Maternal exposure during pregnancy [Unknown]
